FAERS Safety Report 5945251-X (Version None)
Quarter: 2008Q4

REPORT INFORMATION
  Report Type: 
  Country: None (occurrence: None)
  Receive Date: 20081107
  Receipt Date: 20081010
  Transmission Date: 20090506
  Serious: No
  Sender: FDA-Public Use
  Company Number: US-JNJFOC-20081003187

PATIENT
  Sex: Female
  Weight: 46.72 kg

DRUGS (5)
  1. INVEGA [Suspect]
     Indication: ANOREXIA
     Route: 048
  2. INVEGA [Suspect]
     Indication: BULIMIA NERVOSA
     Route: 048
  3. INVEGA [Suspect]
     Indication: BIPOLAR DISORDER
     Route: 048
  4. BUSPAR [Concomitant]
     Indication: ANXIETY
     Route: 048
  5. VYVANSE [Concomitant]
     Indication: ATTENTION DEFICIT/HYPERACTIVITY DISORDER
     Route: 048

REACTIONS (1)
  - HEADACHE [None]
